FAERS Safety Report 8331942-2 (Version None)
Quarter: 2012Q2

REPORT INFORMATION
  Report Type: 
  Country: None (occurrence: None)
  Receive Date: 20120502
  Receipt Date: 20120420
  Transmission Date: 20120825
  Serious: Yes (Hospitalization, Other)
  Sender: FDA-Public Use
  Company Number: US-ELI_LILLY_AND_COMPANY-US201101003275

PATIENT
  Sex: Female

DRUGS (11)
  1. FORTEO [Suspect]
     Dosage: 20 UG, DAILY (1/D)
     Route: 065
  2. CYMBALTA [Concomitant]
     Dosage: UNK, UNKNOWN
  3. XANAX [Concomitant]
     Indication: SLEEP DISORDER
     Dosage: UNK, UNKNOWN
  4. FORTEO [Suspect]
     Indication: OSTEOPOROSIS
     Dosage: 20 UG, DAILY (1/D)
     Route: 065
     Dates: start: 20101101, end: 20101231
  5. SYNTHROID [Concomitant]
  6. FORTEO [Suspect]
     Dosage: 20 UG, DAILY (1/D)
     Route: 065
     Dates: end: 20110301
  7. CARDIOVASCULAR SYSTEM DRUGS [Concomitant]
     Indication: BLOOD PRESSURE ABNORMAL
     Dosage: UNK, UNKNOWN
  8. FORTEO [Suspect]
     Dosage: 20 UG, DAILY (1/D)
     Route: 065
     Dates: start: 20110201
  9. FORTEO [Suspect]
     Dosage: 20 UG, DAILY (1/D)
     Route: 065
  10. NORVASC [Concomitant]
  11. PERCOCET [Concomitant]

REACTIONS (13)
  - SPINAL FRACTURE [None]
  - ASTHMA [None]
  - HYPERTENSION [None]
  - UPPER LIMB FRACTURE [None]
  - BACK DISORDER [None]
  - NAUSEA [None]
  - DRUG DOSE OMISSION [None]
  - MUSCLE RUPTURE [None]
  - INFLAMMATION [None]
  - BACK PAIN [None]
  - MUSCLE SPASMS [None]
  - PAIN [None]
  - PAIN IN EXTREMITY [None]
